FAERS Safety Report 17362729 (Version 1)
Quarter: 2020Q1

REPORT INFORMATION
  Report Type: Spontaneous
  Country: US (occurrence: US)
  Receive Date: 20200202
  Receipt Date: 20200202
  Transmission Date: 20200409
  Serious: Yes (Other)
  Sender: FDA-Public Use
  Company Number: None

PATIENT
  Age: 43 Year
  Sex: Male
  Weight: 108 kg

DRUGS (2)
  1. TIZANIDINE HCL 4 MG TABLET [Concomitant]
  2. HYDROCODONE BITARTRATE AND ACETAMINOPHEN [Suspect]
     Active Substance: ACETAMINOPHEN\HYDROCODONE BITARTRATE
     Indication: PAIN
     Dosage: ?          QUANTITY:90 TABLET(S);?
     Route: 048
     Dates: start: 20200101, end: 20200201

REACTIONS (4)
  - Drug ineffective [None]
  - Dizziness [None]
  - Headache [None]
  - Migraine [None]

NARRATIVE: CASE EVENT DATE: 20200101
